FAERS Safety Report 4701546-9 (Version None)
Quarter: 2005Q2

REPORT INFORMATION
  Report Type: 
  Country: None (occurrence: None)
  Receive Date: 20050627
  Receipt Date: 20050615
  Transmission Date: 20051028
  Serious: Yes (Life-Threatening)
  Sender: FDA-Public Use
  Company Number: 2005-01312

PATIENT
  Age: 23 Year
  Sex: Female

DRUGS (1)
  1. VELCADE [Suspect]
     Indication: GRANULOMA

REACTIONS (2)
  - APNOEA [None]
  - COMA [None]
